FAERS Safety Report 18668983 (Version 1)
Quarter: 2020Q4

REPORT INFORMATION
  Report Type: Other
  Country: CA (occurrence: CA)
  Receive Date: 20201228
  Receipt Date: 20201228
  Transmission Date: 20210114
  Serious: Yes (Death, Other)
  Sender: FDA-Public Use
  Company Number: CA-APOTEX-2020AP024740

PATIENT
  Age: 67 Year
  Sex: Female
  Weight: 59 kg

DRUGS (5)
  1. PALBOCICLIB [Concomitant]
     Active Substance: PALBOCICLIB
     Indication: PRODUCT USED FOR UNKNOWN INDICATION
     Dosage: UNK
     Route: 048
  2. AFINITOR [Suspect]
     Active Substance: EVEROLIMUS
     Dosage: UNK
     Route: 048
  3. EXEMESTANE. [Concomitant]
     Active Substance: EXEMESTANE
     Indication: PRODUCT USED FOR UNKNOWN INDICATION
     Dosage: UNK
     Route: 065
  4. AFINITOR [Suspect]
     Active Substance: EVEROLIMUS
     Indication: BREAST CANCER
     Dosage: 10 MILLIGRAM
     Route: 048
  5. LETROZOLE. [Suspect]
     Active Substance: LETROZOLE
     Indication: BREAST CANCER
     Dosage: UNK
     Route: 048

REACTIONS (20)
  - Breast cancer [Unknown]
  - Back pain [Unknown]
  - Headache [Unknown]
  - Dyspnoea exertional [Unknown]
  - Bone pain [Unknown]
  - Cough [Unknown]
  - Asthenia [Unknown]
  - Constipation [Unknown]
  - Sinusitis [Unknown]
  - Weight decreased [Unknown]
  - Anxiety [Unknown]
  - Dry mouth [Unknown]
  - Tumour marker decreased [Unknown]
  - Blood pressure systolic increased [Unknown]
  - Death [Fatal]
  - Malignant neoplasm progression [Unknown]
  - Irritable bowel syndrome [Unknown]
  - Fatigue [Unknown]
  - Heart rate increased [Unknown]
  - Nausea [Unknown]
